FAERS Safety Report 7098741-3 (Version None)
Quarter: 2010Q4

REPORT INFORMATION
  Report Type: 
  Country: None (occurrence: None)
  Receive Date: 20101112
  Receipt Date: 20101103
  Transmission Date: 20110411
  Serious: Yes (Hospitalization)
  Sender: FDA-Public Use
  Company Number: US-CELGENEUS-163-21880-10092740

PATIENT
  Sex: Female

DRUGS (7)
  1. REVLIMID [Suspect]
     Indication: MULTIPLE MYELOMA
     Route: 048
     Dates: start: 20100801, end: 20100101
  2. REVLIMID [Suspect]
     Route: 048
     Dates: start: 20100923, end: 20100101
  3. TOPROL-XL [Concomitant]
     Route: 065
  4. ATACAND [Concomitant]
     Route: 065
  5. ASPIRIN [Concomitant]
     Route: 065
  6. SYNTHROID [Concomitant]
     Route: 065
  7. TRIAMTERENE [Concomitant]
     Route: 065

REACTIONS (3)
  - BRADYCARDIA [None]
  - FATIGUE [None]
  - LOSS OF CONSCIOUSNESS [None]
